FAERS Safety Report 6142758-X (Version None)
Quarter: 2009Q2

REPORT INFORMATION
  Report Type: 
  Country: None (occurrence: None)
  Receive Date: 20090402
  Receipt Date: 20090402
  Transmission Date: 20091009
  Serious: No
  Sender: FDA-Public Use
  Company Number: None

PATIENT
  Age: 6 Year
  Sex: Female
  Weight: 20.9 kg

DRUGS (5)
  1. SIROLIMUS ORAL SOLUTION 1 MG; 1 ML [Suspect]
     Indication: NEUROFIBROMATOSIS
     Dosage: 1.2 ML BID ORAL
     Route: 048
     Dates: start: 20081114, end: 20090205
  2. SIROLIMUS ORAL SOLUTIONS 1 MG: 1 ML [Suspect]
     Dosage: 0.6 ML BID ORAL
     Route: 048
     Dates: start: 20090212, end: 20090302
  3. NEURONTIN [Concomitant]
  4. POLYFLORIDE [Concomitant]
  5. MOTRIN [Concomitant]

REACTIONS (4)
  - ALANINE AMINOTRANSFERASE INCREASED [None]
  - ASPARTATE AMINOTRANSFERASE INCREASED [None]
  - DIARRHOEA [None]
  - STOMATITIS [None]
